FAERS Safety Report 25226368 (Version 2)
Quarter: 2025Q4

REPORT INFORMATION
  Report Type: Report from Study
  Country: US (occurrence: US)
  Receive Date: 20250422
  Receipt Date: 20251221
  Transmission Date: 20260117
  Serious: Yes (Hospitalization)
  Sender: EISAI
  Company Number: US-Eisai-EC-2025-187698

PATIENT
  Age: 57 Year
  Sex: Female
  Weight: 60.3 kg

DRUGS (24)
  1. LENVIMA [Suspect]
     Active Substance: LENVATINIB
     Indication: Endometrial cancer
     Route: 048
     Dates: start: 20231109, end: 2024
  2. LENVIMA [Suspect]
     Active Substance: LENVATINIB
     Route: 048
     Dates: start: 2025, end: 202504
  3. LENVIMA [Suspect]
     Active Substance: LENVATINIB
     Route: 048
     Dates: start: 202504
  4. MESALAMINE [Concomitant]
     Active Substance: MESALAMINE
     Indication: Product used for unknown indication
     Dosage: DOSE AND FREQUENCY UNKNOWN
  5. PREDNISONE [Concomitant]
     Active Substance: PREDNISONE
     Indication: Product used for unknown indication
     Dosage: DOSE AND FREQUENCY UNKNOWN
  6. AUGMENTIN [Concomitant]
     Active Substance: AMOXICILLIN\CLAVULANATE POTASSIUM
     Indication: Colitis
     Dosage: DOSE AND FREQUENCY UNKNOWN
  7. KEYTRUDA [Concomitant]
     Active Substance: PEMBROLIZUMAB
     Indication: Endometrial cancer
     Dosage: DOSE AND FREQUENCY UNKNOWN
     Route: 042
  8. TYLENOL [Concomitant]
     Active Substance: ACETAMINOPHEN
     Dosage: DOSE AND FREQUENCY UNKNOWN
  9. IBUPROFEN [Concomitant]
     Active Substance: IBUPROFEN
     Dosage: DOSE AND FREQUENCY UNKNOWN
  10. CALCIUM [Concomitant]
     Active Substance: CALCIUM
     Dosage: DOSE AND FREQUENCY UNKNOWN
  11. LORAZEPAM [Concomitant]
     Active Substance: LORAZEPAM
     Dosage: DOSE AND FREQUENCY UNKNOWN
  12. VITAMINS [Concomitant]
     Active Substance: VITAMINS
     Dosage: DOSE AND FREQUENCY UNKNOWN
  13. OXYBUTYNIN [Concomitant]
     Active Substance: OXYBUTYNIN
     Dosage: DOSE AND FREQUENCY UNKNOWN
  14. PEPTO-BISMOL [Concomitant]
     Active Substance: BISMUTH SUBSALICYLATE
     Dosage: DOSE AND FREQUENCY UNKNOWN
  15. PROCHLORPERAZINE [Concomitant]
     Active Substance: PROCHLORPERAZINE
     Dosage: DOSE AND FREQUENCY UNKNOWN
  16. VITAMIN D3 [Concomitant]
     Active Substance: CHOLECALCIFEROL
     Dosage: DOSE AND FREQUENCY UNKNOWN
  17. ENTYVIO [Concomitant]
     Active Substance: VEDOLIZUMAB
     Dosage: DOSE AND FREQUENCY UNKNOWN
  18. LACTASE [Concomitant]
     Active Substance: LACTASE
     Dosage: DOSE AND FREQUENCY UNKNOWN
  19. LOMOTIL [Concomitant]
     Active Substance: ATROPINE SULFATE\DIPHENOXYLATE HYDROCHLORIDE
     Dosage: DOSE AND FREQUENCY UNKNOWN
  20. PANTOPRAZOLE [Concomitant]
     Active Substance: PANTOPRAZOLE
     Dosage: DOSE AND FREQUENCY UNKNOWN
  21. PROBIOTICS NOS [Concomitant]
     Active Substance: PROBIOTICS NOS
     Dosage: DOSE AND FREQUENCY UNKNOWN
  22. SYNTHROID [Concomitant]
     Active Substance: LEVOTHYROXINE SODIUM
     Dosage: DOSE AND FREQUENCY UNKNOWN
  23. TRAMADOL [Concomitant]
     Active Substance: TRAMADOL
     Dosage: DOSE AND FREQUENCY UNKNOWN
  24. VITAMIN C [Concomitant]
     Active Substance: ASCORBIC ACID
     Dosage: DOSE AND FREQUENCY UNKNOWN

REACTIONS (2)
  - Diarrhoea [Unknown]
  - Faecaloma [Recovering/Resolving]

NARRATIVE: CASE EVENT DATE: 20250201
